FAERS Safety Report 6258629-4 (Version None)
Quarter: 2009Q3

REPORT INFORMATION
  Report Type: 
  Country: None (occurrence: None)
  Receive Date: 20090707
  Receipt Date: 20090630
  Transmission Date: 20100115
  Serious: Yes (Hospitalization, Other)
  Sender: FDA-Public Use
  Company Number: US-ASTRAZENECA-2009UW18312

PATIENT
  Age: 793 Month
  Sex: Female
  Weight: 63 kg

DRUGS (2)
  1. NEXIUM [Suspect]
     Route: 048
     Dates: start: 20080501
  2. ASPIRIN [Concomitant]

REACTIONS (6)
  - ANAEMIA [None]
  - ANIMAL BITE [None]
  - DYSPEPSIA [None]
  - DYSPNOEA [None]
  - INAPPROPRIATE SCHEDULE OF DRUG ADMINISTRATION [None]
  - VOMITING [None]
